FAERS Safety Report 8591384-1 (Version None)
Quarter: 2012Q3

REPORT INFORMATION
  Report Type: 
  Country: None (occurrence: None)
  Receive Date: 20120814
  Receipt Date: 20120806
  Transmission Date: 20120928
  Serious: Yes (Hospitalization, Other)
  Sender: FDA-Public Use
  Company Number: CH-ABBOTT-12P-151-0943745-00

PATIENT
  Age: 49 Year
  Sex: Female

DRUGS (17)
  1. PANTOPRAZOLE SODIUM [Concomitant]
     Indication: PROPHYLAXIS
  2. TRANSULOSE [Concomitant]
     Indication: CONSTIPATION
     Dosage: NOT TAKEN REGULARLY.
     Dates: end: 20120322
  3. HYPERICUM PERFORATUM / ST JOHN'S WORT (EPS 112) [Concomitant]
     Indication: ANTIDEPRESSANT THERAPY
     Dates: end: 20120322
  4. ANTIPHLOGISTICS [Concomitant]
     Indication: PRODUCT USED FOR UNKNOWN INDICATION
  5. IPP [Concomitant]
     Indication: PRODUCT USED FOR UNKNOWN INDICATION
  6. ST. JOHN'S WART BASED PHYTOTHERAPY [Concomitant]
     Indication: PRODUCT USED FOR UNKNOWN INDICATION
  7. SPASMO-CANULASE [Concomitant]
     Indication: IRRITABLE BOWEL SYNDROME
     Dosage: NOT TAKEN REGULARLY.
     Dates: end: 20120322
  8. HUMIRA [Suspect]
     Indication: ANKYLOSING SPONDYLITIS
     Dosage: 8 INJECTIONS IN TOTAL
     Dates: start: 20111122, end: 20120228
  9. MOTILIUM [Concomitant]
     Indication: DYSPEPSIA
     Dosage: VARIABLE DOSAGES
     Dates: end: 20120322
  10. VOLTAREN [Concomitant]
     Indication: ARTHRALGIA
     Dosage: VARIABLE DOSAGES
     Dates: end: 20120322
  11. ZOMIG [Concomitant]
     Indication: MIGRAINE
     Dosage: NOT TAKEN REGULARLY. IN CASE OF MIGRAINE
     Dates: end: 20120322
  12. PANTOPRAZOLE SODIUM [Concomitant]
     Indication: GASTRIC DISORDER
     Dosage: 40 MG DAILY
     Dates: end: 20120322
  13. MONURELLE [Concomitant]
     Indication: URINARY TRACT INFECTION
     Dates: end: 20120322
  14. MEBEVERIN [Concomitant]
     Indication: IRRITABLE BOWEL SYNDROME
     Dosage: NOT TAKEN REGULARLY.
     Dates: end: 20120322
  15. SPASFON [Concomitant]
     Indication: IRRITABLE BOWEL SYNDROME
     Dosage: NOT TAKEN REGULARLY.
     Dates: end: 20120322
  16. FERINJECT [Concomitant]
     Indication: PRODUCT USED FOR UNKNOWN INDICATION
     Dosage: 1 PERFUSION
     Route: 042
     Dates: start: 20111109, end: 20111109
  17. LEXOMIL [Concomitant]
     Indication: PRODUCT USED FOR UNKNOWN INDICATION
     Dosage: 1.5-3 MG DAILY
     Dates: end: 20120322

REACTIONS (10)
  - ABDOMINAL PAIN UPPER [None]
  - PROTEIN TOTAL DECREASED [None]
  - YELLOW SKIN [None]
  - HYPERBILIRUBINAEMIA [None]
  - DECREASED APPETITE [None]
  - WEIGHT DECREASED [None]
  - TRANSAMINASES INCREASED [None]
  - AUTOIMMUNE DISORDER [None]
  - FATIGUE [None]
  - DRUG-INDUCED LIVER INJURY [None]
